FAERS Safety Report 14685761 (Version 1)
Quarter: 2018Q1

REPORT INFORMATION
  Report Type: Spontaneous
  Country: US (occurrence: US)
  Receive Date: 20180326
  Receipt Date: 20180326
  Transmission Date: 20180509
  Serious: Yes (Other)
  Sender: FDA-Public Use
  Company Number: None

PATIENT
  Age: 53 Year
  Sex: Female
  Weight: 58.5 kg

DRUGS (13)
  1. NATURE-THROID [Concomitant]
     Active Substance: THYROID, PORCINE
  2. TRAZODONE [Concomitant]
     Active Substance: TRAZODONE HYDROCHLORIDE
  3. UNITHROID [Concomitant]
     Active Substance: LEVOTHYROXINE SODIUM
  4. VENLAFAXINE [Concomitant]
     Active Substance: VENLAFAXINE HYDROCHLORIDE
  5. LITHOBID [Concomitant]
     Active Substance: LITHIUM CARBONATE
  6. CORTEF [Concomitant]
     Active Substance: HYDROCORTISONE
  7. CALCIUM [Concomitant]
     Active Substance: CALCIUM
  8. VENLAFAXINE HYDROCHLORIDE EXTENDED RELEASE CAPSULES, 37.5 MG [Suspect]
     Active Substance: VENLAFAXINE HYDROCHLORIDE
     Indication: FIBROMYALGIA
     Dosage: ?          QUANTITY:1 CAPSULE(S);?
     Route: 048
     Dates: start: 20180318, end: 20180325
  9. ALPRAZOLAM. [Concomitant]
     Active Substance: ALPRAZOLAM
  10. LYRICA [Concomitant]
     Active Substance: PREGABALIN
  11. SERTRALINE [Concomitant]
     Active Substance: SERTRALINE HYDROCHLORIDE
  12. VITAMIN D [Concomitant]
     Active Substance: CHOLECALCIFEROL
  13. MAGNESIUM [Concomitant]
     Active Substance: MAGNESIUM

REACTIONS (9)
  - Pain in extremity [None]
  - Insomnia [None]
  - Anxiety [None]
  - Joint stiffness [None]
  - Myalgia [None]
  - Bedridden [None]
  - Product substitution issue [None]
  - Nausea [None]
  - Loss of personal independence in daily activities [None]

NARRATIVE: CASE EVENT DATE: 20180325
